FAERS Safety Report 5224743-5 (Version None)
Quarter: 2007Q1

REPORT INFORMATION
  Report Type: 
  Country: None (occurrence: None)
  Receive Date: 20070129
  Receipt Date: 20070129
  Transmission Date: 20070707
  Serious: Yes (Death, Life-Threatening, Hospitalization)
  Sender: FDA-Public Use
  Company Number: None

PATIENT
  Age: 78 Year
  Sex: Male

DRUGS (4)
  1. WARFARIN SODIUM [Suspect]
     Indication: CORONARY ARTERY DISEASE
     Dosage: 5MG QD PO
     Route: 048
  2. WARFARIN SODIUM [Suspect]
     Indication: DEEP VEIN THROMBOSIS
     Dosage: 5MG QD PO
     Route: 048
  3. LOVENOX [Suspect]
     Indication: CORONARY ARTERY DISEASE
     Dosage: 60MG Q12 SQ
     Route: 058
  4. LOVENOX [Suspect]
     Indication: DEEP VEIN THROMBOSIS
     Dosage: 60MG Q12 SQ
     Route: 058

REACTIONS (4)
  - CEREBRAL HAEMORRHAGE [None]
  - HEADACHE [None]
  - LETHARGY [None]
  - MENTAL STATUS CHANGES [None]
